FAERS Safety Report 7924787-6 (Version None)
Quarter: 2011Q4

REPORT INFORMATION
  Report Type: 
  Country: None (occurrence: None)
  Receive Date: 20111118
  Receipt Date: 20110328
  Transmission Date: 20120403
  Serious: Yes (Other)
  Sender: FDA-Public Use
  Company Number: US-AMGEN-USASP2011016520

PATIENT
  Age: 9 Year
  Sex: Female

DRUGS (2)
  1. METHOTREXATE [Concomitant]
     Dosage: 1 MG, QWK
     Dates: start: 20100728
  2. ENBREL [Suspect]
     Indication: JUVENILE ARTHRITIS
     Dosage: 35 MG, QWK
     Dates: start: 20110127

REACTIONS (2)
  - INJECTION SITE PAIN [None]
  - INFLUENZA [None]
